FAERS Safety Report 7209451-3 (Version None)
Quarter: 2011Q1

REPORT INFORMATION
  Report Type: 
  Country: None (occurrence: None)
  Receive Date: 20110104
  Receipt Date: 20101221
  Transmission Date: 20110831
  Serious: Yes (Death, Other)
  Sender: FDA-Public Use
  Company Number: IE-GENENTECH-297280

PATIENT
  Sex: Female
  Weight: 50 kg

DRUGS (22)
  1. FOSAMAX [Concomitant]
     Indication: OSTEOPOROSIS
     Dosage: 70 MG, 1/WEEK
     Route: 048
     Dates: start: 20070101
  2. PREDNISOLONE [Concomitant]
     Dosage: UNK
     Route: 048
     Dates: start: 20071001
  3. PREDNISOLONE [Concomitant]
     Dosage: UNK
     Route: 048
     Dates: start: 20071001
  4. PREDNISOLONE [Concomitant]
     Dosage: UNK
     Route: 048
     Dates: start: 20080226
  5. METHYLPREDNISOLONE ACETATE [Concomitant]
     Dosage: 200 MG, UNK
     Route: 042
     Dates: start: 20091029
  6. CALCICHEW [Concomitant]
     Indication: PRODUCT USED FOR UNKNOWN INDICATION
  7. METHOTREXATE [Concomitant]
     Indication: MYOSITIS
     Dosage: 12.5 MG, 1/WEEK
     Route: 048
     Dates: start: 20080501
  8. IMMUNE GLOBULIN NOS [Concomitant]
     Indication: MYOSITIS
     Dosage: UNK
     Route: 042
     Dates: start: 20080801, end: 20090401
  9. SODIUM CHLORIDE [Concomitant]
     Indication: PRODUCT USED FOR UNKNOWN INDICATION
  10. MABTHERA [Suspect]
     Indication: RHEUMATOID ARTHRITIS
     Dosage: 1 G, UNK
     Route: 042
     Dates: start: 20091014, end: 20091014
  11. PREDNISOLONE [Concomitant]
     Indication: RHEUMATOID ARTHRITIS
     Dosage: UNK
     Route: 048
     Dates: start: 20071001
  12. FERROUS FUMARATE [Concomitant]
     Indication: PRODUCT USED FOR UNKNOWN INDICATION
  13. METHYLPREDNISOLONE ACETATE [Concomitant]
     Indication: PREMEDICATION
     Dosage: 200 MG, UNK
     Route: 042
  14. DELTACORTILEN [Concomitant]
     Indication: PRODUCT USED FOR UNKNOWN INDICATION
     Dosage: 5 MG, UNK
  15. CALCIUM/VITAMIN D [Concomitant]
     Indication: OSTEOPOROSIS
     Dosage: UNK
     Route: 048
     Dates: start: 20070101
  16. MABTHERA [Suspect]
     Indication: MYOSITIS
     Dosage: 1 G, UNK
     Route: 042
     Dates: start: 20091029, end: 20091029
  17. ASPIRIN [Concomitant]
     Indication: PRODUCT USED FOR UNKNOWN INDICATION
     Route: 048
  18. PREDNISOLONE [Concomitant]
     Dosage: UNK
     Dates: start: 20080601
  19. METHYLPREDNISOLONE ACETATE [Concomitant]
     Dosage: 12.5 MG, 1/WEEK
     Route: 042
     Dates: start: 20080422, end: 20080801
  20. PARACETAMOL [Concomitant]
     Indication: PREMEDICATION
     Dosage: 1 G, UNK
     Route: 048
     Dates: start: 20091029
  21. PIRITON [Concomitant]
     Indication: PREMEDICATION
     Dosage: 10 MG, UNK
     Dates: start: 20091029
  22. ARIPIPRAZOLE [Concomitant]
     Indication: PRODUCT USED FOR UNKNOWN INDICATION

REACTIONS (10)
  - CONFUSIONAL STATE [None]
  - CEREBROVASCULAR ACCIDENT [None]
  - BLOOD GLUCOSE DECREASED [None]
  - DISORIENTATION [None]
  - HALLUCINATION [None]
  - ANXIETY [None]
  - PARANOIA [None]
  - MYELODYSPLASTIC SYNDROME [None]
  - PROGRESSIVE MULTIFOCAL LEUKOENCEPHALOPATHY [None]
  - DEPRESSION [None]
